FAERS Safety Report 7413335-5 (Version None)
Quarter: 2011Q2

REPORT INFORMATION
  Report Type: 
  Country: None (occurrence: None)
  Receive Date: 20110413
  Receipt Date: 20101213
  Transmission Date: 20111010
  Serious: No
  Sender: FDA-Public Use
  Company Number: US-ASTRAZENECA-2010SE58871

PATIENT
  Age: 79 Year
  Sex: Female
  Weight: 83 kg

DRUGS (2)
  1. LISINOPRIL [Suspect]
     Route: 048
  2. ATENOLOL [Suspect]
     Route: 065

REACTIONS (4)
  - DRUG INTOLERANCE [None]
  - ASTHENIA [None]
  - DEPRESSION [None]
  - RASH [None]
